FAERS Safety Report 8622831-4 (Version None)
Quarter: 2012Q3

REPORT INFORMATION
  Report Type: 
  Country: None (occurrence: None)
  Receive Date: 20120827
  Receipt Date: 20120808
  Transmission Date: 20120928
  Serious: Yes (Other)
  Sender: FDA-Public Use
  Company Number: JP-009507513-2012SP020578

PATIENT

DRUGS (13)
  1. REBETOL [Suspect]
     Dosage: 600 MG, QD
     Route: 048
     Dates: start: 20120131, end: 20120208
  2. REBETOL [Suspect]
     Dosage: 200 MG, QD
     Route: 048
     Dates: start: 20120215, end: 20120711
  3. FEROTYM [Concomitant]
     Indication: IRON DEFICIENCY ANAEMIA
     Dosage: FORMULATION-POR
     Route: 048
  4. EPADEL S [Concomitant]
     Indication: HYPERLIPIDAEMIA
     Dosage: UPDATE (30MAY2012) DOSE: 1800 MG QD
     Route: 048
  5. ETIZOLAM [Concomitant]
     Indication: INSOMNIA
     Dosage: UPDATE (30MAY2012) FORMULATION POR; TRADE NAME UNKNOWN
     Route: 048
  6. NORVASC [Concomitant]
     Indication: HYPERTENSION
     Dosage: FORMULATION-POR
     Route: 048
  7. DEPAS [Concomitant]
     Indication: INSOMNIA
     Dosage: 1 MG, QD
     Route: 048
  8. REBETOL [Suspect]
     Dosage: 400 MG, QD
     Route: 048
     Dates: start: 20120209, end: 20120214
  9. TELAVIC [Suspect]
     Indication: HEPATITIS C
     Dosage: 1500 MG, QD
     Route: 048
     Dates: start: 20120131, end: 20120424
  10. PEGINTERFERON ALFA-2B [Suspect]
     Indication: HEPATITIS C
     Dosage: 1.5 ?G/KG, QW
     Route: 058
     Dates: start: 20120131, end: 20120207
  11. CLARITIN REDITABS [Concomitant]
     Indication: PROPHYLAXIS
     Dosage: 10 MG, QD
     Route: 048
  12. LIVALO [Concomitant]
     Indication: HYPERLIPIDAEMIA
     Dosage: FORMULATION-POR
     Route: 048
  13. PEGINTERFERON ALFA-2B [Suspect]
     Dosage: 1.0 ?G/KG, QW
     Route: 058
     Dates: start: 20120215

REACTIONS (2)
  - PLATELET COUNT DECREASED [None]
  - ANAEMIA [None]
